FAERS Safety Report 21846592 (Version 1)
Quarter: 2023Q1

REPORT INFORMATION
  Report Type: Spontaneous
  Country: US (occurrence: US)
  Receive Date: 20230111
  Receipt Date: 20230111
  Transmission Date: 20230418
  Serious: No
  Sender: FDA-Public Use
  Company Number: US-ALKEM LABORATORIES LIMITED-US-ALKEM-2022-01719

PATIENT
  Sex: Male

DRUGS (1)
  1. METHADONE HYDROCHLORIDE [Suspect]
     Active Substance: METHADONE HYDROCHLORIDE
     Indication: Product used for unknown indication
     Dosage: UNK MILLIGRAM
     Route: 065

REACTIONS (8)
  - Illness [Unknown]
  - Headache [Unknown]
  - Balance disorder [Unknown]
  - Dry eye [Unknown]
  - Oral discomfort [Unknown]
  - Dizziness [Unknown]
  - Diplopia [Unknown]
  - Pain [Unknown]
